FAERS Safety Report 24404570 (Version 1)
Quarter: 2024Q4

REPORT INFORMATION
  Report Type: Spontaneous
  Country: US (occurrence: US)
  Receive Date: 20241007
  Receipt Date: 20241007
  Transmission Date: 20250115
  Serious: No
  Sender: ROCHE
  Company Number: US-ROCHE-3502686

PATIENT

DRUGS (2)
  1. GAZYVA [Suspect]
     Active Substance: OBINUTUZUMAB
     Indication: Chronic lymphocytic leukaemia
     Dosage: ONE TIME DOSE
     Route: 042
     Dates: start: 20240129
  2. GAZYVA [Suspect]
     Active Substance: OBINUTUZUMAB
     Route: 042
     Dates: start: 20240130

REACTIONS (2)
  - No adverse event [Unknown]
  - Wrong technique in product usage process [Unknown]
